FAERS Safety Report 6986806-3 (Version None)
Quarter: 2010Q3

REPORT INFORMATION
  Report Type: 
  Country: None (occurrence: None)
  Receive Date: 20100915
  Receipt Date: 20090804
  Transmission Date: 20110219
  Serious: No
  Sender: FDA-Public Use
  Company Number: US-WYE-H10444209

PATIENT
  Sex: Female
  Weight: 86.26 kg

DRUGS (5)
  1. PRISTIQ [Suspect]
     Indication: DEPRESSION
     Route: 048
     Dates: start: 20090701
  2. SOMINEX [Concomitant]
  3. PREMARIN [Concomitant]
  4. RESTORIL [Concomitant]
  5. ESTRADIOL [Concomitant]

REACTIONS (2)
  - MEDICATION RESIDUE [None]
  - UNEVALUABLE EVENT [None]
